FAERS Safety Report 8839319 (Version 2)
Quarter: 2013Q1

REPORT INFORMATION
  Report Type: Spontaneous
  Country: US (occurrence: US)
  Receive Date: 20121015
  Receipt Date: 20130116
  Transmission Date: 20140127
  Serious: Yes (Other)
  Sender: FDA-Public Use
  Company Number: US-AMGEN-USASP2012064923

PATIENT
  Age: 33 Year
  Sex: Female
  Weight: 67.12 kg

DRUGS (4)
  1. ENBREL [Suspect]
     Indication: ANKYLOSING SPONDYLITIS
     Dosage: 50 MG, QMO
     Dates: start: 20110907, end: 20120905
  2. PRENATAL VITAMINS                  /02014401/ [Concomitant]
     Dosage: 1 TABLET, QD
     Route: 048
     Dates: start: 20110907
  3. FISH OIL [Concomitant]
     Dosage: 1000 MG, QD
     Route: 048
     Dates: start: 201101
  4. ACYCLOVIR                          /00587301/ [Concomitant]
     Indication: HERPES VIRUS INFECTION
     Dosage: 400 MG, AS NEEDED
     Route: 048
     Dates: start: 201101

REACTIONS (1)
  - Abortion spontaneous [Unknown]
